FAERS Safety Report 20649882 (Version 1)
Quarter: 2022Q1

REPORT INFORMATION
  Report Type: Spontaneous
  Country: US (occurrence: US)
  Receive Date: 20220329
  Receipt Date: 20220329
  Transmission Date: 20220424
  Serious: No
  Sender: FDA-Public Use
  Company Number: US-PERRIGO-21US033470

PATIENT
  Sex: Female
  Weight: 59.41 kg

DRUGS (2)
  1. ACETAMINOPHEN [Suspect]
     Active Substance: ACETAMINOPHEN
     Indication: Fibromyalgia
     Dosage: 650 MG, 1 TO 2 TIMES WEEKLY PRN
     Route: 048
  2. ACETAMINOPHEN [Suspect]
     Active Substance: ACETAMINOPHEN
     Indication: Insomnia
     Dosage: 650 MG, 1 TO 2 TIMES WEEKLY PRN
     Route: 048
     Dates: end: 202111

REACTIONS (2)
  - Somnolence [Recovered/Resolved]
  - Drug effective for unapproved indication [Unknown]
